FAERS Safety Report 8174202-5 (Version None)
Quarter: 2012Q1

REPORT INFORMATION
  Report Type: 
  Country: None (occurrence: None)
  Receive Date: 20120229
  Receipt Date: 20120223
  Transmission Date: 20120608
  Serious: Yes (Other)
  Sender: FDA-Public Use
  Company Number: US-BAYER-200937711NA

PATIENT
  Age: 59 Year
  Sex: Male
  Weight: 106.58 kg

DRUGS (19)
  1. TRASYLOL [Suspect]
     Indication: CORONARY ARTERY BYPASS
     Dosage: 10000 U, UNK
     Route: 042
     Dates: start: 20060621, end: 20060621
  2. TRASYLOL [Suspect]
     Dosage: 200 ML (2 MILLION UNITS) PUMP PRIME
     Dates: start: 20060621
  3. TOPROL-XL [Concomitant]
     Dosage: 50 MG, QD
     Route: 048
     Dates: start: 20050426, end: 20060601
  4. ANCEF [Concomitant]
     Dosage: 1 G, UNK
     Route: 042
     Dates: start: 20060621, end: 20060621
  5. MANNITOL [Concomitant]
     Dosage: 25 GRAM
     Route: 042
     Dates: start: 20060621, end: 20060621
  6. LISINOPRIL [Concomitant]
     Dosage: 5 MG, QD
     Route: 048
  7. POTASSIUM CHLORIDE [Concomitant]
     Route: 048
  8. LEVAQUIN [Concomitant]
     Dosage: 500 MG, UNK
     Route: 042
     Dates: start: 20060621
  9. HEPARIN [Concomitant]
     Dosage: 1000 U/ML, UNK
     Route: 042
     Dates: start: 20060621
  10. VANCOMYCIN [Concomitant]
     Dosage: 1000 MG/ML, UNK
     Route: 042
     Dates: start: 20060621
  11. INSULIN [Concomitant]
     Dosage: UNK
     Route: 042
     Dates: start: 20060620, end: 20060621
  12. LEVOPHED [Concomitant]
     Dosage: UNK
     Route: 042
     Dates: start: 20060621, end: 20060621
  13. TRASYLOL [Suspect]
     Indication: AORTIC BYPASS
     Dosage: 10,000 UNITS
     Dates: start: 20060621, end: 20060621
  14. NITROGLYCERIN [Concomitant]
     Dosage: 0.2 MG, UNK
     Route: 062
  15. VERSED [Concomitant]
     Dosage: 5 MG, UNK
     Route: 042
     Dates: start: 20060621
  16. PROTAMINE SULFATE [Concomitant]
     Dosage: 50 MG, UNK
     Route: 042
     Dates: start: 20060621, end: 20060621
  17. TRASYLOL [Suspect]
     Indication: AORTIC VALVE REPLACEMENT
     Dosage: 1 ML TEST DOSE
     Dates: start: 20060621, end: 20060621
  18. GLIPIZIDE [Concomitant]
     Dosage: 5 MG, BID
     Route: 048
     Dates: start: 20040728
  19. THROMBIN LOCAL SOLUTION [Concomitant]
     Dosage: 5000 U/ML, UNK
     Route: 042
     Dates: start: 20060621

REACTIONS (6)
  - INJURY [None]
  - UNEVALUABLE EVENT [None]
  - PSYCHOLOGICAL TRAUMA [None]
  - RENAL FAILURE ACUTE [None]
  - RENAL FAILURE [None]
  - PAIN [None]
